FAERS Safety Report 15154671 (Version 3)
Quarter: 2018Q3

REPORT INFORMATION
  Report Type: Spontaneous
  Country: US (occurrence: US)
  Receive Date: 20180717
  Receipt Date: 20180927
  Transmission Date: 20181010
  Serious: No
  Sender: FDA-Public Use
  Company Number: US-PFIZER INC-2018285825

PATIENT
  Age: 59 Year
  Sex: Female

DRUGS (5)
  1. IBRANCE [Suspect]
     Active Substance: PALBOCICLIB
     Indication: BREAST CANCER FEMALE
     Dosage: 100 MG, CYCLIC (3 TIMES A WEEK, DAILY ON M, W, F)
     Route: 048
     Dates: start: 20180522, end: 2018
  2. IBRANCE [Suspect]
     Active Substance: PALBOCICLIB
     Dosage: 125 MG, CYCLIC (4 TIMES A WEEK, DAILY ON T, R, S, S)
     Route: 048
     Dates: start: 20180716
  3. IBRANCE [Suspect]
     Active Substance: PALBOCICLIB
     Dosage: 125 MG, CYCLIC (T, TH, SA AND SUN)
     Route: 048
     Dates: start: 20180522
  4. IBRANCE [Suspect]
     Active Substance: PALBOCICLIB
     Dosage: 100 MG, CYCLIC (M, W, FR)
     Route: 048
     Dates: start: 20180522
  5. LETROZOLE. [Concomitant]
     Active Substance: LETROZOLE
     Dosage: UNK

REACTIONS (3)
  - Dry skin [Unknown]
  - Weight increased [Unknown]
  - Pruritus [Unknown]

NARRATIVE: CASE EVENT DATE: 20180713
